FAERS Safety Report 13334511 (Version 1)
Quarter: 2017Q1

REPORT INFORMATION
  Report Type: Spontaneous
  Country: CH (occurrence: CH)
  Receive Date: 20170314
  Receipt Date: 20170314
  Transmission Date: 20170428
  Serious: Yes (Hospitalization)
  Sender: FDA-Public Use
  Company Number: CH-TEVA-746866ISR

PATIENT
  Age: 28 Year
  Sex: Male
  Weight: 54 kg

DRUGS (6)
  1. ENTYVIO [Suspect]
     Active Substance: VEDOLIZUMAB
     Indication: CROHN^S DISEASE
     Route: 040
     Dates: start: 2015
  2. TAZOBAC [Suspect]
     Active Substance: PIPERACILLIN SODIUM\TAZOBACTAM SODIUM
     Indication: ABDOMINAL INFECTION
     Route: 040
     Dates: start: 20170122, end: 20170209
  3. ACCUPAQUE 300 MG I/ML INJEKTIONSLOESUNG [Suspect]
     Active Substance: IOHEXOL
     Indication: ABDOMEN SCAN
     Route: 040
     Dates: start: 20170122, end: 20170122
  4. BUDESONIDE. [Suspect]
     Active Substance: BUDESONIDE
     Indication: CROHN^S DISEASE
     Route: 048
     Dates: end: 20170117
  5. DIFLUCAN [Concomitant]
     Active Substance: FLUCONAZOLE
     Indication: PERITONEAL CANDIDIASIS
     Route: 040
     Dates: start: 20170130
  6. VANCOMYCIN [Suspect]
     Active Substance: VANCOMYCIN
     Indication: ABDOMINAL INFECTION
     Route: 040
     Dates: start: 20170203, end: 20170209

REACTIONS (6)
  - Abdominal abscess [Recovered/Resolved]
  - Post procedural infection [Recovered/Resolved]
  - Acute kidney injury [Recovering/Resolving]
  - Gastrointestinal anastomotic leak [Recovered/Resolved]
  - Abdominal wall abscess [Recovered/Resolved]
  - Drug prescribing error [Recovered/Resolved]

NARRATIVE: CASE EVENT DATE: 20170122
